FAERS Safety Report 19567524 (Version 1)
Quarter: 2021Q3

REPORT INFORMATION
  Report Type: Report from Study
  Country: US (occurrence: US)
  Receive Date: 20210715
  Receipt Date: 20210715
  Transmission Date: 20211014
  Serious: Yes (Other)
  Sender: FDA-Public Use
  Company Number: US-ASTRAZENECA-2021A604796

PATIENT
  Sex: Male

DRUGS (1)
  1. CALQUENCE [Suspect]
     Active Substance: ACALABRUTINIB
     Indication: LYMPHOCYTIC LEUKAEMIA
     Route: 048

REACTIONS (6)
  - Hypotension [Unknown]
  - Rash [Unknown]
  - Blood glucose increased [Unknown]
  - Pollakiuria [Unknown]
  - Sphingomonas paucimobilis infection [Unknown]
  - Asthenia [Unknown]
